FAERS Safety Report 6441610-X (Version None)
Quarter: 2009Q4

REPORT INFORMATION
  Report Type: 
  Country: None (occurrence: None)
  Receive Date: 20091116
  Receipt Date: 20091104
  Transmission Date: 20100525
  Serious: Yes (Hospitalization)
  Sender: FDA-Public Use
  Company Number: ES-ELI_LILLY_AND_COMPANY-ES200910003403

PATIENT
  Age: 12 Year
  Sex: Male

DRUGS (3)
  1. STRATTERA [Suspect]
     Dosage: 10 MG, UNKNOWN
     Route: 048
     Dates: start: 20090101, end: 20090101
  2. STRATTERA [Suspect]
     Dosage: 18 MG, UNKNOWN
     Route: 048
     Dates: start: 20090101, end: 20090101
  3. STRATTERA [Suspect]
     Dosage: 25 MG, UNKNOWN
     Route: 048
     Dates: start: 20090901

REACTIONS (3)
  - DYSPEPSIA [None]
  - GASTRIC ULCER [None]
  - GASTROOESOPHAGEAL REFLUX DISEASE [None]
